FAERS Safety Report 9494523 (Version 1)
Quarter: 2013Q3

REPORT INFORMATION
  Report Type: Spontaneous
  Country: US (occurrence: US)
  Receive Date: 20130903
  Receipt Date: 20130903
  Transmission Date: 20140515
  Serious: Yes (Death, Other)
  Sender: FDA-Public Use
  Company Number: US-PFIZER INC-2013251022

PATIENT
  Age: 8 Year
  Sex: Male

DRUGS (6)
  1. EPIPEN [Suspect]
     Indication: ANAPHYLACTIC REACTION
     Dosage: UNK
     Route: 042
  2. DIPHENHYDRAMINE [Concomitant]
     Indication: ANAPHYLACTIC REACTION
     Dosage: UNK
  3. ALBUTEROL [Concomitant]
     Indication: ANAPHYLACTIC REACTION
  4. FLOVENT [Concomitant]
     Dosage: 110 MCG 2 PUFFS TWO TIMES A DAY
  5. ZYRTEC [Concomitant]
     Dosage: 5 MG, AS NEEDED
  6. ALBUTEROL [Concomitant]
     Dosage: 2 PUFFS AS NEEDED

REACTIONS (3)
  - Hypotension [Fatal]
  - Cyanosis [Fatal]
  - Cardiac arrest [Fatal]
